FAERS Safety Report 24365098 (Version 2)
Quarter: 2025Q1

REPORT INFORMATION
  Report Type: Spontaneous
  Country: US (occurrence: US)
  Receive Date: 20240926
  Receipt Date: 20250218
  Transmission Date: 20250409
  Serious: No
  Sender: BRISTOL-MYERS SQUIBB COMPANY
  Company Number: US-BRISTOL-MYERS SQUIBB COMPANY-2024-151883

PATIENT
  Age: 77 Year
  Sex: Female

DRUGS (2)
  1. THALOMID [Suspect]
     Active Substance: THALIDOMIDE
     Indication: Chemotherapy
     Route: 048
  2. THALOMID [Suspect]
     Active Substance: THALIDOMIDE
     Indication: Essential thrombocythaemia

REACTIONS (3)
  - Haemoglobin decreased [Unknown]
  - Product dose omission issue [Unknown]
  - Off label use [Unknown]
